FAERS Safety Report 7212777-0 (Version None)
Quarter: 2011Q1

REPORT INFORMATION
  Report Type: 
  Country: None (occurrence: None)
  Receive Date: 20110106
  Receipt Date: 20101216
  Transmission Date: 20110831
  Serious: No
  Sender: FDA-Public Use
  Company Number: US-B.I. PHARMACEUTICALS,INC./RIDGEFIELD-2010-BP-14813BP

PATIENT
  Sex: Male

DRUGS (3)
  1. PRADAXA [Suspect]
     Indication: ATRIAL FIBRILLATION
     Dosage: 300 MG
     Route: 048
     Dates: start: 20101101
  2. PLAVIX [Concomitant]
     Indication: ATRIAL FIBRILLATION
     Dosage: 75 MG
     Route: 048
     Dates: start: 20101101
  3. ZOCOR [Concomitant]
     Indication: BLOOD CHOLESTEROL INCREASED
     Route: 048
     Dates: start: 20101101

REACTIONS (7)
  - SKIN TURGOR DECREASED [None]
  - HAEMORRHAGIC DIATHESIS [None]
  - CONTUSION [None]
  - FATIGUE [None]
  - EPISTAXIS [None]
  - DEPRESSION [None]
  - HAEMATOCHEZIA [None]
